FAERS Safety Report 19703160 (Version 1)
Quarter: 2021Q3

REPORT INFORMATION
  Report Type: Other
  Country: TW (occurrence: TW)
  Receive Date: 20210816
  Receipt Date: 20210816
  Transmission Date: 20211014
  Serious: Yes (Other)
  Sender: FDA-Public Use
  Company Number: TW-GUARDIAN DRUG COMPANY-2115066

PATIENT
  Age: 21 Year
  Sex: Male

DRUGS (2)
  1. TENOXICAM [Suspect]
     Active Substance: TENOXICAM
     Route: 065
  2. CHILDRENS IBUPROFEN [Suspect]
     Active Substance: IBUPROFEN
     Indication: PRODUCT USED FOR UNKNOWN INDICATION
     Route: 065

REACTIONS (2)
  - Sebaceous gland disorder [Recovering/Resolving]
  - Toxic epidermal necrolysis [Recovered/Resolved]
